FAERS Safety Report 9856296 (Version 1)
Quarter: 2014Q1

REPORT INFORMATION
  Report Type: Spontaneous
  Country: US (occurrence: US)
  Receive Date: 20140130
  Receipt Date: 20140130
  Transmission Date: 20141002
  Serious: No
  Sender: FDA-Public Use
  Company Number: US-B.I. PHARMACEUTICALS,INC./RIDGEFIELD-2014-BI-02800BP

PATIENT
  Age: 67 Year
  Sex: Female
  Weight: 49 kg

DRUGS (2)
  1. COMBIVENT [Suspect]
     Indication: CHRONIC OBSTRUCTIVE PULMONARY DISEASE
     Dosage: DOSE PER APPLICATION: 18 MCG / 103 MCG
     Route: 055
     Dates: start: 2011, end: 20140117
  2. KEPPRA [Concomitant]
     Indication: INTRACRANIAL ANEURYSM
     Route: 048
     Dates: start: 2011

REACTIONS (2)
  - Middle ear effusion [Recovered/Resolved]
  - Pulmonary congestion [Not Recovered/Not Resolved]
